FAERS Safety Report 8354202-2 (Version None)
Quarter: 2012Q2

REPORT INFORMATION
  Report Type: 
  Country: None (occurrence: None)
  Receive Date: 20120511
  Receipt Date: 20120509
  Transmission Date: 20120825
  Serious: Yes (Other)
  Sender: FDA-Public Use
  Company Number: PHHY2012FR039952

PATIENT
  Sex: Female

DRUGS (4)
  1. IFOSFAMIDE [Suspect]
     Route: 064
  2. ONDANSETRON [Suspect]
     Route: 064
  3. METOCLOPRAMIDE [Suspect]
     Route: 064
  4. DOXORUBICIN HCL [Suspect]
     Route: 064

REACTIONS (3)
  - PREMATURE BABY [None]
  - LOW BIRTH WEIGHT BABY [None]
  - FOETAL EXPOSURE DURING PREGNANCY [None]
